FAERS Safety Report 20944803 (Version 1)
Quarter: 2022Q2

REPORT INFORMATION
  Report Type: Spontaneous
  Country: US (occurrence: None)
  Receive Date: 20220609
  Receipt Date: 20220609
  Transmission Date: 20220721
  Serious: Yes (Hospitalization)
  Sender: FDA-Public Use
  Company Number: None

PATIENT
  Sex: Female

DRUGS (1)
  1. HUMIRA [Suspect]
     Active Substance: ADALIMUMAB
     Indication: Rheumatoid arthritis
     Dosage: 40 / 0.8 MG/ML? ?INJECT 1 SYRINGE UNDER THE SKIN (SUBCUTANEOUS INJECTION) EVERY OTHER WEEK?
     Route: 058
     Dates: start: 20210127

REACTIONS (5)
  - Rheumatoid arthritis [None]
  - COVID-19 [None]
  - Pain [None]
  - Nausea [None]
  - Therapy interrupted [None]
